FAERS Safety Report 15963707 (Version 1)
Quarter: 2019Q1

REPORT INFORMATION
  Report Type: Spontaneous
  Country: US (occurrence: US)
  Receive Date: 20190214
  Receipt Date: 20190214
  Transmission Date: 20190417
  Serious: No
  Sender: FDA-Public Use
  Company Number: US-B.I. PHARMACEUTICALS,INC./RIDGEFIELD-2019-BI-005763

PATIENT
  Age: 55 Year
  Sex: Female

DRUGS (2)
  1. PULMICORT FLEXHALER [Concomitant]
     Active Substance: BUDESONIDE
     Indication: ASTHMA
     Dosage: 2 INHALATIONS TWICE A DAY;  FORMULATION: INHALATION AEROSOL;
     Route: 048
  2. SPIRIVA RESPIMAT [Suspect]
     Active Substance: TIOTROPIUM BROMIDE
     Indication: ASTHMA
     Dosage: 2 INHALATIONS ONCE A DAY;  STRE: 1.25 MCG; FORM: INHALATION SPR ADMINISTR YES ACTION: DRUG WITHDRAWN
     Route: 055
     Dates: start: 2018, end: 2018

REACTIONS (1)
  - Dyspnoea [Recovered/Resolved]

NARRATIVE: CASE EVENT DATE: 2018
